FAERS Safety Report 17216179 (Version 3)
Quarter: 2020Q1

REPORT INFORMATION
  Report Type: Report from Study
  Country: US (occurrence: US)
  Receive Date: 20191230
  Receipt Date: 20200218
  Transmission Date: 20200409
  Serious: Yes (Life-Threatening, Hospitalization, Congenital Anomaly, Other)
  Sender: FDA-Public Use
  Company Number: US-ACTELION-A-US2017-156246

PATIENT
  Age: 60 Year
  Sex: Female
  Weight: 67.57 kg

DRUGS (11)
  1. OPSUMIT [Suspect]
     Active Substance: MACITENTAN
     Indication: PULMONARY ARTERIAL HYPERTENSION
     Dosage: 10 MG, QD
     Route: 048
     Dates: start: 20161117, end: 20191203
  2. ORENITRAM [Suspect]
     Active Substance: TREPROSTINIL
     Indication: PRODUCT USED FOR UNKNOWN INDICATION
     Dosage: 10 MG, TID
     Route: 048
  3. ORENITRAM [Suspect]
     Active Substance: TREPROSTINIL
     Dosage: 14 MG, TID
     Route: 065
  4. ESBRIET [Concomitant]
     Active Substance: PIRFENIDONE
  5. OPSUMIT [Suspect]
     Active Substance: MACITENTAN
     Dosage: 10 MG, QD
     Route: 048
  6. REVATIO [Concomitant]
     Active Substance: SILDENAFIL CITRATE
  7. ORENITRAM [Suspect]
     Active Substance: TREPROSTINIL
     Dosage: 12 MG, TID
     Route: 065
  8. ORENITRAM [Suspect]
     Active Substance: TREPROSTINIL
     Dosage: 15 MG, TID
     Route: 065
  9. PROSTACYCLIN [Suspect]
     Active Substance: EPOPROSTENOL
     Indication: PRODUCT USED FOR UNKNOWN INDICATION
     Route: 065
  10. ORENITRAM [Suspect]
     Active Substance: TREPROSTINIL
     Dosage: 9 MG, TID
     Route: 048
  11. AMLODIPINE [Concomitant]
     Active Substance: AMLODIPINE BESYLATE

REACTIONS (29)
  - Transplant evaluation [Unknown]
  - Fluid overload [Unknown]
  - Diabetic neuropathy [Not Recovered/Not Resolved]
  - Nasopharyngitis [Unknown]
  - Gait disturbance [Recovering/Resolving]
  - Unevaluable event [Recovered/Resolved]
  - Lumbar radiculopathy [Unknown]
  - Diarrhoea [Unknown]
  - Pain in extremity [Unknown]
  - Cough [Recovered/Resolved]
  - Blood pressure increased [Unknown]
  - Hypoxia [Recovered/Resolved with Sequelae]
  - Pulmonary hypertension [Unknown]
  - Chest pain [Recovering/Resolving]
  - Feeling abnormal [Unknown]
  - Hypotension [Recovered/Resolved with Sequelae]
  - Respiratory failure [Unknown]
  - Nasal congestion [Unknown]
  - Lung transplant [Unknown]
  - Influenza [Recovered/Resolved]
  - Upper respiratory tract infection [Recovered/Resolved]
  - Disease progression [Unknown]
  - Mobility decreased [Unknown]
  - Dyspnoea [Recovered/Resolved]
  - Interstitial lung disease [Unknown]
  - Myalgia [Unknown]
  - Headache [Unknown]
  - Sciatica [Not Recovered/Not Resolved]
  - Dyspnoea exertional [Unknown]

NARRATIVE: CASE EVENT DATE: 20170111
